FAERS Safety Report 23190642 (Version 5)
Quarter: 2024Q1

REPORT INFORMATION
  Report Type: Report from Study
  Country: IT (occurrence: IT)
  Receive Date: 20231116
  Receipt Date: 20240323
  Transmission Date: 20240409
  Serious: Yes (Hospitalization, Other)
  Sender: FDA-Public Use
  Company Number: IT-ROCHE-2194937

PATIENT
  Age: 55 Year
  Sex: Female
  Weight: 70 kg

DRUGS (48)
  1. CYCLOPHOSPHAMIDE [Suspect]
     Active Substance: CYCLOPHOSPHAMIDE
     Indication: HER2 positive breast cancer
     Dosage: 600 MG, EVERY 3 WEEKS
     Route: 042
     Dates: start: 20220315, end: 20220520
  2. CYCLOPHOSPHAMIDE [Suspect]
     Active Substance: CYCLOPHOSPHAMIDE
     Dosage: 1000 MG, EVERY 3 WEEKS
     Route: 042
     Dates: start: 20220315, end: 20220520
  3. DOXORUBICIN [Suspect]
     Active Substance: DOXORUBICIN
     Indication: HER2 positive breast cancer
     Dosage: 60 MG, EVERY 3 WEEKS
     Route: 042
     Dates: start: 20220315, end: 20220520
  4. DOXORUBICIN [Suspect]
     Active Substance: DOXORUBICIN
     Dosage: 100 MG, EVERY 3 WEEKS
     Route: 042
     Dates: start: 20220315, end: 20220520
  5. PERJETA [Suspect]
     Active Substance: PERTUZUMAB
     Indication: HER2 positive breast cancer
     Dosage: 840 MG, EVERY 3 WEEKS
     Route: 042
     Dates: start: 20171118, end: 20171118
  6. PERJETA [Suspect]
     Active Substance: PERTUZUMAB
     Dosage: 420 MG, EVERY 3 WEEKS
     Route: 042
     Dates: start: 20171209, end: 20200918
  7. RIBOCICLIB [Suspect]
     Active Substance: RIBOCICLIB
     Indication: HER2 positive breast cancer
     Dosage: 200 MG, EVERY 0.33 DAY
     Route: 048
     Dates: start: 20210618, end: 20221114
  8. PARAPLATIN [Suspect]
     Active Substance: CARBOPLATIN
     Indication: HER2 positive breast cancer
     Dosage: UNK, EVERY 3 WEEKS, 4AUC
     Route: 042
     Dates: start: 20220527, end: 20220729
  9. PARAPLATIN [Suspect]
     Active Substance: CARBOPLATIN
     Dosage: UNK, EVERY 3 WEEKS, 6AUC
     Route: 042
     Dates: start: 20220204, end: 20220225
  10. GEMZAR [Suspect]
     Active Substance: GEMCITABINE HYDROCHLORIDE
     Indication: HER2 positive breast cancer
     Dosage: 1400 MG, EVERY 1 WEEK
     Route: 042
     Dates: start: 20220527, end: 20220729
  11. GEMZAR [Suspect]
     Active Substance: GEMCITABINE HYDROCHLORIDE
     Dosage: 800 MG, EVERY 1 WEEK
     Route: 042
     Dates: start: 20220527, end: 20220729
  12. PEMBROLIZUMAB [Suspect]
     Active Substance: PEMBROLIZUMAB
     Indication: HER2 positive breast cancer
     Dosage: 200 MG, EVERY 3 WEEKS
     Route: 042
     Dates: start: 20220204, end: 20220225
  13. HERCEPTIN [Suspect]
     Active Substance: TRASTUZUMAB
     Indication: HER2 positive breast cancer
     Dosage: 8 MG/KG, EVERY 3 WEEKS, MOST RECENT DOSE PRIOR TO THE EVENT: 17/JUN/2022
     Route: 042
     Dates: start: 20171118, end: 20171118
  14. HERCEPTIN [Suspect]
     Active Substance: TRASTUZUMAB
     Dosage: 6 MG/KG, EVERY 3 WEEK
     Route: 042
     Dates: start: 20171209, end: 20210521
  15. HERCEPTIN [Suspect]
     Active Substance: TRASTUZUMAB
     Dosage: 560 MG, EVERY 1 WEEK
     Route: 042
     Dates: start: 20220527, end: 20220527
  16. HERCEPTIN [Suspect]
     Active Substance: TRASTUZUMAB
     Dosage: 420 MG, EVERY 3 WEEKS
     Route: 042
     Dates: start: 20220617, end: 20220729
  17. HERCEPTIN [Suspect]
     Active Substance: TRASTUZUMAB
     Dosage: 8 MG/KG, EVERY 3 WEEKS
     Route: 042
     Dates: start: 20220527, end: 20220729
  18. TAXOTERE [Suspect]
     Active Substance: DOCETAXEL
     Indication: HER2 positive breast cancer
     Dosage: 130 MG, EVERY 3 WEEKS
     Route: 042
     Dates: start: 20171118, end: 20180210
  19. TAXOTERE [Suspect]
     Active Substance: DOCETAXEL
     Dosage: 100 MG, EVERY 3 WEEKS
     Route: 042
     Dates: start: 20180303, end: 20180414
  20. AROMASIN [Suspect]
     Active Substance: EXEMESTANE
     Indication: HER2 positive breast cancer
     Dosage: 25 MG, ONCE DAILY
     Route: 048
     Dates: start: 20180713, end: 20201009
  21. XELODA [Suspect]
     Active Substance: CAPECITABINE
     Indication: HER2 positive breast cancer
     Dosage: 500 MG, EVERY 0.33 DAY
     Route: 048
     Dates: start: 20220805, end: 20220824
  22. XELODA [Suspect]
     Active Substance: CAPECITABINE
     Dosage: 500 MG, EVERY 0.5 DAY
     Route: 048
     Dates: start: 20221205, end: 20230112
  23. FASLODEX [Suspect]
     Active Substance: FULVESTRANT
     Indication: HER2 positive breast cancer
     Dosage: 500 MG, EVERY 3 WEEKS
     Route: 030
     Dates: start: 20210521, end: 20211231
  24. TALAZOPARIB [Suspect]
     Active Substance: TALAZOPARIB
     Indication: HER2 positive breast cancer
     Dosage: 1 MG, QD
     Route: 048
     Dates: start: 20201106, end: 20210423
  25. NOLVADEX [Suspect]
     Active Substance: TAMOXIFEN CITRATE
     Indication: HER2 positive breast cancer
     Dosage: 20 MG, QD, MOST RECENT DOSE RECEIVED ON 12/JUL/2018
     Route: 065
     Dates: start: 20180622, end: 20180712
  26. DENOSUMAB [Concomitant]
     Active Substance: DENOSUMAB
     Dosage: 120 MG, EVERY 1 MONTH, ONGOING = CHECKED
     Route: 065
     Dates: start: 20190315, end: 20220125
  27. LOPERAMIDE [Concomitant]
     Active Substance: LOPERAMIDE
     Indication: Diarrhoea
     Dosage: 2 MG, ONGOING = CHECKED
     Route: 065
     Dates: start: 20171119, end: 20180302
  28. Decapeptyl [Concomitant]
     Indication: HER2 positive breast cancer
     Dosage: 3.75 MG, EVERY 1 MONTH, MOST RECENT DOSE RECEIVED ON 02/NOV/2018
     Route: 065
     Dates: start: 20180713, end: 20181102
  29. LORAZEPAM [Concomitant]
     Active Substance: LORAZEPAM
     Dosage: UNK
     Route: 065
  30. LEVOSULPIRIDE [Concomitant]
     Active Substance: LEVOSULPIRIDE
     Dosage: 50 MG
     Route: 065
     Dates: start: 20171118, end: 20180414
  31. LEVOSULPIRIDE [Concomitant]
     Active Substance: LEVOSULPIRIDE
     Dosage: 15 (DROP (1/12 MILLILITRE)
     Route: 065
     Dates: start: 20190329, end: 20210706
  32. LANSOPRAZOLE [Concomitant]
     Active Substance: LANSOPRAZOLE
     Dosage: 30 MG, QD
     Route: 065
     Dates: start: 20180504, end: 20180622
  33. LANSOPRAZOLE [Concomitant]
     Active Substance: LANSOPRAZOLE
     Dosage: 30 MG, QD
     Route: 065
     Dates: start: 20171208, end: 20180413
  34. LANSOPRAZOLE [Concomitant]
     Active Substance: LANSOPRAZOLE
     Dosage: 30 MG, QD
     Route: 065
     Dates: start: 20180525, end: 20180622
  35. LANSOPRAZOLE [Concomitant]
     Active Substance: LANSOPRAZOLE
     Dosage: 15 MG, QD
     Route: 065
     Dates: start: 20171117, end: 20171207
  36. LANSOPRAZOLE [Concomitant]
     Active Substance: LANSOPRAZOLE
     Dosage: UNK
     Route: 065
     Dates: start: 20171118, end: 20180414
  37. CHLORPHENIRAMINE MALEATE [Concomitant]
     Active Substance: CHLORPHENIRAMINE MALEATE
     Dosage: 10 MG
     Route: 065
     Dates: start: 20171118, end: 20210515
  38. VEA LIPOGEL [Concomitant]
     Dosage: UNK, QD, ONGOING = CHECKED
     Route: 065
     Dates: start: 20190215, end: 20211231
  39. Ecoval [Concomitant]
     Dosage: UNK, EVERY 0.5 DAY, ONGOING = CHECKED
     Route: 065
     Dates: start: 20200424, end: 20211231
  40. CETIRIZINE [Concomitant]
     Active Substance: CETIRIZINE HYDROCHLORIDE
     Dosage: 10 MG, QD, ONGOING = CHECKED
     Route: 065
     Dates: start: 20190531, end: 20220805
  41. PREDNISONE [Concomitant]
     Active Substance: PREDNISONE
     Dosage: 25 MG, ONGOING = NOT CHECKED
     Route: 065
     Dates: start: 20171117, end: 20180503
  42. PREDNISONE [Concomitant]
     Active Substance: PREDNISONE
     Dosage: 25 MG, ONGOING = NOT CHECKED
     Route: 065
     Dates: start: 20171230, end: 20180503
  43. PREDNISONE [Concomitant]
     Active Substance: PREDNISONE
     Dosage: 25 MG
     Route: 065
     Dates: start: 20171117, end: 20171229
  44. DEXAMETHASONE [Concomitant]
     Active Substance: DEXAMETHASONE
     Dosage: 8 MG
     Route: 065
     Dates: start: 20171118, end: 20180414
  45. ALPRAZOLAM [Concomitant]
     Active Substance: ALPRAZOLAM
     Dosage: UNK, QD, ONGOING = CHECKED
     Route: 065
     Dates: start: 20180803, end: 20211129
  46. DEXAMETHASONE SODIUM PHOSPHATE [Concomitant]
     Active Substance: DEXAMETHASONE PHOSPHATE\DEXAMETHASONE SODIUM PHOSPHATE
     Dosage: 4 MG, EVERY 0.5 WEEK, ONGOING=CHECKED
     Route: 065
     Dates: start: 20220922
  47. ONDANSETRON [Concomitant]
     Active Substance: ONDANSETRON
     Dosage: 8 MG, ONGOING=NOT CHECKED
     Route: 065
     Dates: start: 20210514, end: 20220729
  48. HALOPERIDOL [Concomitant]
     Active Substance: HALOPERIDOL
     Dosage: 15 DROPS (DROP (1/12 MILLILITRE), EVERY 0.5 DAY
     Route: 065
     Dates: start: 20221215

REACTIONS (3)
  - Pneumonitis [Recovered/Resolved]
  - Pneumonia [Recovered/Resolved]
  - Diarrhoea [Recovered/Resolved]

NARRATIVE: CASE EVENT DATE: 20220819
